FAERS Safety Report 9845704 (Version 1)
Quarter: 2014Q1

REPORT INFORMATION
  Report Type: Spontaneous
  Country: US (occurrence: US)
  Receive Date: 20140127
  Receipt Date: 20140127
  Transmission Date: 20141002
  Serious: Yes (Other)
  Sender: FDA-Public Use
  Company Number: US-PFIZER INC-2014024748

PATIENT
  Age: 52 Year
  Sex: Female
  Weight: 73.02 kg

DRUGS (4)
  1. CHANTIX [Suspect]
     Indication: SMOKING CESSATION THERAPY
     Dosage: UNK, 2X/DAY
     Dates: start: 201401, end: 201401
  2. PROZAC [Concomitant]
     Indication: DEPRESSION
     Dosage: UNK, DAILY
  3. CLOZAPINE [Concomitant]
     Indication: ANXIETY
     Dosage: UNK, DAILY
  4. XANAX [Concomitant]
     Indication: ANXIETY
     Dosage: UNK, AS NEEDED

REACTIONS (4)
  - Suicidal ideation [Not Recovered/Not Resolved]
  - Depression [Not Recovered/Not Resolved]
  - Mood swings [Not Recovered/Not Resolved]
  - Abnormal dreams [Not Recovered/Not Resolved]
